FAERS Safety Report 6787874-4 (Version None)
Quarter: 2010Q2

REPORT INFORMATION
  Report Type: 
  Country: None (occurrence: None)
  Receive Date: 20100623
  Receipt Date: 20070918
  Transmission Date: 20101027
  Serious: No
  Sender: FDA-Public Use
  Company Number: US-PFIZER INC-2007078356

PATIENT
  Sex: Female

DRUGS (2)
  1. DEPO-PROVERA SUSPENSION/INJ [Suspect]
     Indication: MENSTRUAL DISCOMFORT
     Dosage: FIRST INJECTION/12 WEEKS
     Route: 030
     Dates: start: 20040101, end: 20040101
  2. DEPO-PROVERA SUSPENSION/INJ [Suspect]
     Dosage: EVERY 8 WEEKS
     Route: 030

REACTIONS (3)
  - METRORRHAGIA [None]
  - MIGRAINE [None]
  - PERSONALITY CHANGE [None]
